FAERS Safety Report 7792199-4 (Version None)
Quarter: 2011Q4

REPORT INFORMATION
  Report Type: 
  Country: None (occurrence: None)
  Receive Date: 20111003
  Receipt Date: 20111003
  Transmission Date: 20120403
  Serious: Yes (Other)
  Sender: FDA-Public Use
  Company Number: None

PATIENT
  Sex: Female
  Weight: 83.007 kg

DRUGS (1)
  1. SILENOR [Suspect]
     Indication: INSOMNIA
     Dosage: 6MG -1/2 PILL TO START OUT-
     Route: 048
     Dates: start: 20110928, end: 20110930

REACTIONS (1)
  - VISION BLURRED [None]
